FAERS Safety Report 18131344 (Version 1)
Quarter: 2020Q3

REPORT INFORMATION
  Report Type: Spontaneous
  Country: DE (occurrence: DE)
  Receive Date: 20200810
  Receipt Date: 20200810
  Transmission Date: 20201103
  Serious: Yes (Other)
  Sender: FDA-Public Use
  Company Number: NVSC2020DE221433

PATIENT
  Age: 64 Year
  Sex: Male

DRUGS (6)
  1. PROTAMINE [Concomitant]
     Active Substance: PROTAMINE
     Indication: PRODUCT USED FOR UNKNOWN INDICATION
     Dosage: UNK
     Route: 065
  2. ARGATROBAN. [Suspect]
     Active Substance: ARGATROBAN
     Indication: HEPARIN-INDUCED THROMBOCYTOPENIA
     Dosage: UNK
     Route: 065
  3. ARGATROBAN. [Suspect]
     Active Substance: ARGATROBAN
     Dosage: UNK
     Route: 065
  4. CANGRELOR [Concomitant]
     Active Substance: CANGRELOR
     Indication: PRODUCT USED FOR UNKNOWN INDICATION
     Dosage: 30 ?G/KG
     Route: 041
  5. CANGRELOR [Concomitant]
     Active Substance: CANGRELOR
     Dosage: 4 UG/KG/MIN
     Route: 041
  6. HEPARIN [Concomitant]
     Active Substance: HEPARIN SODIUM
     Indication: ANTICOAGULANT THERAPY
     Dosage: 400 IU/KG
     Route: 065

REACTIONS (1)
  - Atrial thrombosis [Recovered/Resolved]
